FAERS Safety Report 15625799 (Version 1)
Quarter: 2018Q4

REPORT INFORMATION
  Report Type: Spontaneous
  Country: US (occurrence: US)
  Receive Date: 20181116
  Receipt Date: 20181116
  Transmission Date: 20190205
  Serious: No
  Sender: FDA-Public Use
  Company Number: US-GLAXOSMITHKLINE-US2018GSK202805

PATIENT
  Sex: Male

DRUGS (1)
  1. SEREVENT DISKUS [Suspect]
     Active Substance: SALMETEROL XINAFOATE
     Route: 055

REACTIONS (3)
  - Aphthous ulcer [Unknown]
  - Product dose omission [Unknown]
  - Ill-defined disorder [Unknown]
